FAERS Safety Report 18563817 (Version 2)
Quarter: 2020Q4

REPORT INFORMATION
  Report Type: Spontaneous
  Country: GB (occurrence: GB)
  Receive Date: 20201201
  Receipt Date: 20201226
  Transmission Date: 20210114
  Serious: Yes (Other)
  Sender: FDA-Public Use
  Company Number: GB-AXELLIA-003529

PATIENT
  Age: 49 Year
  Sex: Female
  Weight: 120 kg

DRUGS (19)
  1. POTASSIUM CHLORIDE. [Concomitant]
     Active Substance: POTASSIUM CHLORIDE
  2. ENOXAPARIN [Concomitant]
     Active Substance: ENOXAPARIN
  3. ATRACURIUM [Concomitant]
     Active Substance: ATRACURIUM
  4. ESCITALOPRAM [Concomitant]
     Active Substance: ESCITALOPRAM OXALATE
  5. DIAZEPAN [Concomitant]
     Active Substance: DIAZEPAM
  6. VANCOMYCIN [Suspect]
     Active Substance: VANCOMYCIN
     Indication: PRODUCT USED FOR UNKNOWN INDICATION
     Dosage: OVER 24 HOURS
     Route: 042
     Dates: start: 20201106, end: 20201109
  7. TINZAPARIN [Concomitant]
     Active Substance: TINZAPARIN
  8. TAZOCIN [Concomitant]
     Active Substance: PIPERACILLIN SODIUM\TAZOBACTAM SODIUM
  9. FUROSEMIDE. [Concomitant]
     Active Substance: FUROSEMIDE
  10. FOSTAIR NEXTHALER [Concomitant]
     Active Substance: BECLOMETHASONE DIPROPIONATE\FORMOTEROL FUMARATE
  11. PARACETAMOL [Concomitant]
     Active Substance: ACETAMINOPHEN
  12. MEROPENEM. [Concomitant]
     Active Substance: MEROPENEM
  13. DEXAMETHASONE. [Concomitant]
     Active Substance: DEXAMETHASONE
  14. PREDNISOLONE. [Concomitant]
     Active Substance: PREDNISOLONE
  15. MONTELUKAST [Concomitant]
     Active Substance: MONTELUKAST SODIUM
  16. SENNA ALEXANDRINA [Concomitant]
     Active Substance: SENNA LEAF
  17. LANSOPRAZOLE. [Concomitant]
     Active Substance: LANSOPRAZOLE
  18. LACTULOSE. [Concomitant]
     Active Substance: LACTULOSE
  19. METOCLOPRAMIDE. [Concomitant]
     Active Substance: METOCLOPRAMIDE

REACTIONS (2)
  - Renal failure [Unknown]
  - Nephropathy toxic [Unknown]

NARRATIVE: CASE EVENT DATE: 20201106
